FAERS Safety Report 21058521 (Version 3)
Quarter: 2022Q3

REPORT INFORMATION
  Report Type: Report from Study
  Country: CA (occurrence: CA)
  Receive Date: 20220708
  Receipt Date: 20220819
  Transmission Date: 20221027
  Serious: Yes (Death, Other)
  Sender: FDA-Public Use
  Company Number: CA-GLAXOSMITHKLINE-CA2021GSK230291

PATIENT

DRUGS (4)
  1. NIRAPARIB [Suspect]
     Active Substance: NIRAPARIB
     Indication: Ovarian cancer
     Dosage: 300 MG
     Route: 048
     Dates: start: 20170919, end: 20171017
  2. NIRAPARIB [Suspect]
     Active Substance: NIRAPARIB
     Dosage: 100 MG
     Route: 048
     Dates: start: 20180208, end: 20180304
  3. CARBOPLATIN [Concomitant]
     Active Substance: CARBOPLATIN
     Indication: Product used for unknown indication
     Dosage: UNK
     Dates: start: 20210622, end: 20210622
  4. GEMCITABINE [Concomitant]
     Active Substance: GEMCITABINE
     Indication: Product used for unknown indication
     Dosage: UNK
     Dates: end: 20210612

REACTIONS (1)
  - Myelodysplastic syndrome [Fatal]

NARRATIVE: CASE EVENT DATE: 20210811
